FAERS Safety Report 5009770-5 (Version None)
Quarter: 2006Q2

REPORT INFORMATION
  Report Type: 
  Country: None (occurrence: None)
  Receive Date: 20060524
  Receipt Date: 20060209
  Transmission Date: 20061013
  Serious: Yes (Hospitalization)
  Sender: FDA-Public Use
  Company Number: US-ROCHE-436179

PATIENT
  Age: 48 Year
  Sex: Female
  Weight: 74.8 kg

DRUGS (7)
  1. PEGASYS [Suspect]
     Route: 058
     Dates: start: 20051015, end: 20051109
  2. PEGASYS [Suspect]
     Dosage: REDUCED DUE TO THROMBOCYTOPENIA AND NEUTROPENIA DEVELOPED IN WEEK 3.
     Route: 058
     Dates: start: 20051110, end: 20051127
  3. PEGASYS [Suspect]
     Route: 058
     Dates: start: 20051128, end: 20060121
  4. COPEGUS [Suspect]
     Dosage: 400 MG IN THE MORNING AND 600 MG IN THE EVENING.
     Route: 048
     Dates: start: 20051015, end: 20060121
  5. RESTORIL [Concomitant]
     Indication: INSOMNIA
     Dosage: TAKEN AT NIGHT AS NEEDED
     Route: 048
  6. ATIVAN [Concomitant]
     Indication: ANXIETY
     Route: 048
  7. FIORICET [Concomitant]
     Indication: HEADACHE
     Route: 048

REACTIONS (16)
  - ALOPECIA [None]
  - BREAST CYST [None]
  - DEPRESSION [None]
  - DIZZINESS [None]
  - FATIGUE [None]
  - HYPERSENSITIVITY [None]
  - INFLUENZA LIKE ILLNESS [None]
  - INSOMNIA [None]
  - LOSS OF CONSCIOUSNESS [None]
  - NEUTROPENIA [None]
  - PAIN [None]
  - PANCYTOPENIA [None]
  - PYREXIA [None]
  - RASH [None]
  - SYNCOPE [None]
  - THROMBOCYTOPENIA [None]
